FAERS Safety Report 8986632 (Version 1)
Quarter: 2012Q4

REPORT INFORMATION
  Report Type: Spontaneous
  Country: US (occurrence: None)
  Receive Date: 20121219
  Receipt Date: 20121219
  Transmission Date: 20130627
  Serious: Yes (Life-Threatening, Other)
  Sender: FDA-Public Use
  Company Number: None

PATIENT
  Age: 63 Year
  Sex: Male
  Weight: 111.13 kg

DRUGS (1)
  1. LYRICA [Suspect]
     Indication: NERVE PAIN
     Dosage: 1 capsule  2xday-Morn/evening  po
     Route: 048
     Dates: start: 20121209, end: 20121212

REACTIONS (11)
  - Chest discomfort [None]
  - Dyspnoea [None]
  - Nausea [None]
  - Dizziness [None]
  - Syncope [None]
  - Fall [None]
  - Vertigo [None]
  - Urticaria [None]
  - Pruritus [None]
  - Balance disorder [None]
  - Painful respiration [None]
